FAERS Safety Report 12141929 (Version 2)
Quarter: 2016Q2

REPORT INFORMATION
  Report Type: Spontaneous
  Country: US (occurrence: US)
  Receive Date: 20160303
  Receipt Date: 20160622
  Transmission Date: 20160815
  Serious: No
  Sender: FDA-Public Use
  Company Number: US-BRISTOL-MYERS SQUIBB COMPANY-BMS-2016-015660

PATIENT
  Age: 73 Year
  Sex: Female

DRUGS (2)
  1. ABILIFY [Suspect]
     Active Substance: ARIPIPRAZOLE
     Indication: SLEEP DISORDER
  2. ABILIFY [Suspect]
     Active Substance: ARIPIPRAZOLE
     Indication: DEPRESSION
     Dosage: 1 DF, ONE TIME DOSE
     Route: 065
     Dates: start: 20160222

REACTIONS (4)
  - Amnesia [Unknown]
  - Off label use [Unknown]
  - Sleep disorder [Unknown]
  - Wrong technique in product usage process [Unknown]
